FAERS Safety Report 5066619-2 (Version None)
Quarter: 2006Q3

REPORT INFORMATION
  Report Type: 
  Country: None (occurrence: None)
  Receive Date: 20060728
  Receipt Date: 20060717
  Transmission Date: 20061208
  Serious: Yes (Other)
  Sender: FDA-Public Use
  Company Number: 2006088308

PATIENT
  Sex: Female
  Weight: 81.6475 kg

DRUGS (11)
  1. AROMASIN [Suspect]
     Indication: BREAST CANCER
     Dosage: 25 MG 25 MG, 1 IN 1 D)
     Dates: start: 20050101
  2. ACTONEL [Concomitant]
  3. ENALAPRIL MALEATE [Concomitant]
  4. GLUCOSAMINE (GLUCOSAMINE) [Concomitant]
  5. FISH OIL (FISH OIL) [Concomitant]
  6. PREVACID [Concomitant]
  7. CALCIUM (CALCIUM) [Concomitant]
  8. MULTIVITAMIN [Concomitant]
  9. FOLIC ACID [Concomitant]
  10. VITAMIN B12 [Concomitant]
  11. CELEBREX [Concomitant]

REACTIONS (7)
  - ARTHRALGIA [None]
  - BONE DENSITY DECREASED [None]
  - BONE PAIN [None]
  - FATIGUE [None]
  - HOT FLUSH [None]
  - HYPERHIDROSIS [None]
  - STRESS [None]
